FAERS Safety Report 20053170 (Version 1)
Quarter: 2021Q4

REPORT INFORMATION
  Report Type: Spontaneous
  Country: US (occurrence: None)
  Receive Date: 20211109
  Receipt Date: 20211109
  Transmission Date: 20220303
  Serious: No
  Sender: FDA-Public Use
  Company Number: None

PATIENT

DRUGS (3)
  1. ADDERALL [Suspect]
     Active Substance: AMPHETAMINE ASPARTATE\AMPHETAMINE SULFATE\DEXTROAMPHETAMINE SACCHARATE\DEXTROAMPHETAMINE SULFATE
  2. BENADRYL [Suspect]
     Active Substance: DIPHENHYDRAMINE HYDROCHLORIDE
  3. ATIVAN [Suspect]
     Active Substance: LORAZEPAM

REACTIONS (6)
  - Wrong patient received product [None]
  - Wrong product administered [None]
  - Anxiety [None]
  - Fatigue [None]
  - Product dispensing error [None]
  - Product distribution issue [None]
